APPROVED DRUG PRODUCT: CAFCIT
Active Ingredient: CAFFEINE CITRATE
Strength: EQ 30MG BASE/3ML (EQ 10MG BASE/ML)
Dosage Form/Route: SOLUTION;INTRAVENOUS
Application: N020793 | Product #001 | TE Code: AP
Applicant: HIKMA PHARMACEUTICALS USA INC
Approved: Sep 21, 1999 | RLD: Yes | RS: Yes | Type: RX